FAERS Safety Report 15005653 (Version 1)
Quarter: 2018Q2

REPORT INFORMATION
  Report Type: Spontaneous
  Country: US (occurrence: US)
  Receive Date: 20180525
  Receipt Date: 20180525
  Transmission Date: 20180711
  Serious: Yes (Disabling)
  Sender: FDA-Public Use
  Company Number: None

PATIENT
  Age: 59 Year
  Sex: Male
  Weight: 112.5 kg

DRUGS (8)
  1. TRESIBA [Concomitant]
     Active Substance: INSULIN DEGLUDEC
  2. DIOVAN HCT [Concomitant]
     Active Substance: HYDROCHLOROTHIAZIDE\VALSARTAN
  3. LEXAPRO [Concomitant]
     Active Substance: ESCITALOPRAM OXALATE
  4. METFORMIN [Concomitant]
     Active Substance: METFORMIN HYDROCHLORIDE
  5. HUMALOG [Concomitant]
     Active Substance: INSULIN LISPRO
  6. JARDIANCE [Concomitant]
     Active Substance: EMPAGLIFLOZIN
  7. EZETIMIBE. [Concomitant]
     Active Substance: EZETIMIBE
  8. LUCENTIS [Suspect]
     Active Substance: RANIBIZUMAB
     Indication: MACULAR OEDEMA
     Dosage: ?          OTHER FREQUENCY:MONTHLY BY DOCTOR;?
     Route: 047

REACTIONS (8)
  - Peripheral swelling [None]
  - Vitreous floaters [None]
  - Vision blurred [None]
  - Constipation [None]
  - Asthenopia [None]
  - Headache [None]
  - Gait disturbance [None]
  - Weight increased [None]

NARRATIVE: CASE EVENT DATE: 20180315
